FAERS Safety Report 9846288 (Version 2)
Quarter: 2014Q1

REPORT INFORMATION
  Report Type: Spontaneous
  Country: US (occurrence: US)
  Receive Date: 20140127
  Receipt Date: 20140318
  Transmission Date: 20141002
  Serious: Yes (Other)
  Sender: FDA-Public Use
  Company Number: US-FRI-1000053087

PATIENT
  Age: 77 Year
  Sex: Female

DRUGS (6)
  1. TUDORZA PRESSAIR [Suspect]
     Indication: PULMONARY FIBROSIS
     Dosage: 800 MCG
     Route: 055
     Dates: start: 201312, end: 201403
  2. JANUVIA [Concomitant]
     Indication: DIABETES MELLITUS
     Dosage: 25 MG
  3. JANUVIA [Concomitant]
     Dosage: 50 MG
  4. JANUVIA [Concomitant]
     Dosage: 25 MG
  5. PREDNISONE [Concomitant]
     Indication: PULMONARY FIBROSIS
     Dosage: 10 MG
  6. THYROID MEDICATION NOS [Concomitant]

REACTIONS (2)
  - Blood glucose increased [Recovering/Resolving]
  - Off label use [Recovered/Resolved]
